FAERS Safety Report 5765515-2 (Version None)
Quarter: 2008Q2

REPORT INFORMATION
  Report Type: 
  Country: None (occurrence: None)
  Receive Date: 20080611
  Receipt Date: 20080523
  Transmission Date: 20081010
  Serious: Yes (Other)
  Sender: FDA-Public Use
  Company Number: US-PURDUE-DEU_2008_0004350

PATIENT
  Age: 10 Month

DRUGS (1)
  1. MORPHINE SULFATE [Suspect]
     Indication: CANCER PAIN
     Dosage: 5 MG, SINGLE
     Route: 008

REACTIONS (3)
  - APNOEA [None]
  - BRADYCARDIA [None]
  - INCORRECT DOSE ADMINISTERED [None]
